FAERS Safety Report 17485610 (Version 2)
Quarter: 2020Q2

REPORT INFORMATION
  Report Type: Spontaneous
  Country: US (occurrence: US)
  Receive Date: 20200302
  Receipt Date: 20200403
  Transmission Date: 20200713
  Serious: No
  Sender: FDA-Public Use
  Company Number: US-SA-2020SA053799

PATIENT
  Sex: Male

DRUGS (4)
  1. NASONEX [Concomitant]
     Active Substance: MOMETASONE FUROATE
     Indication: RHINITIS ALLERGIC
     Dosage: UNK, 2 SPRAYS IN EACH NOSTRIL
     Route: 045
  2. DUPIXENT [Suspect]
     Active Substance: DUPILUMAB
     Indication: DERMATITIS ATOPIC
     Dosage: 300 MG, QOW
     Route: 058
     Dates: start: 20190506, end: 201910
  3. DUPIXENT [Suspect]
     Active Substance: DUPILUMAB
     Dosage: UNK
  4. FLOVENT HFA [Concomitant]
     Active Substance: FLUTICASONE PROPIONATE
     Indication: ASTHMA
     Dosage: 2 PUFFS
     Route: 048

REACTIONS (2)
  - Perioral dermatitis [Unknown]
  - Dermatitis [Unknown]

NARRATIVE: CASE EVENT DATE: 2020
